FAERS Safety Report 6653054-6 (Version None)
Quarter: 2010Q1

REPORT INFORMATION
  Report Type: 
  Country: None (occurrence: None)
  Receive Date: 20100326
  Receipt Date: 20100317
  Transmission Date: 20100710
  Serious: Yes (Other)
  Sender: FDA-Public Use
  Company Number: PHHY2009GB55084

PATIENT
  Sex: Female

DRUGS (4)
  1. CLOZARIL [Suspect]
     Dosage: UNK
     Dates: start: 20091208
  2. CLOZARIL [Suspect]
     Dosage: UNK
     Dates: start: 20100201, end: 20100210
  3. ARIPIPRAZOLE [Concomitant]
  4. LITHIUM [Concomitant]

REACTIONS (3)
  - NEUTROPENIA [None]
  - RHEUMATOID ARTHRITIS [None]
  - WHITE BLOOD CELL COUNT DECREASED [None]
